FAERS Safety Report 4720520-X (Version None)
Quarter: 2005Q3

REPORT INFORMATION
  Report Type: 
  Country: None (occurrence: None)
  Receive Date: 20050721
  Receipt Date: 20050517
  Transmission Date: 20060218
  Serious: No
  Sender: FDA-Public Use
  Company Number: US-BRISTOL-MYERS SQUIBB COMPANY-12972543

PATIENT
  Age: 59 Year
  Sex: Female

DRUGS (5)
  1. GLUCOVANCE [Suspect]
     Indication: DIABETES MELLITUS
     Route: 048
     Dates: start: 20031101
  2. LOTENSIN [Concomitant]
  3. LEXAPRO [Concomitant]
  4. BEXTRA [Concomitant]
  5. ZIAC [Concomitant]
     Dosage: DOSE = 5/6.25 MG

REACTIONS (1)
  - ASPARTATE AMINOTRANSFERASE INCREASED [None]
